FAERS Safety Report 8616280-2 (Version None)
Quarter: 2012Q3

REPORT INFORMATION
  Report Type: 
  Country: None (occurrence: None)
  Receive Date: 20120815
  Receipt Date: 20120815
  Transmission Date: 20120928
  Serious: Yes (Other)
  Sender: FDA-Public Use
  Company Number: None

PATIENT
  Sex: Male

DRUGS (1)
  1. SERTRALINE HYDROCHLORIDE [Suspect]
     Dosage: 50MG ONCE DAILY

REACTIONS (5)
  - PARAESTHESIA [None]
  - DEPRESSION [None]
  - MUSCLE TWITCHING [None]
  - DYSKINESIA [None]
  - SOMATOFORM DISORDER [None]
